FAERS Safety Report 21648715 (Version 1)
Quarter: 2022Q4

REPORT INFORMATION
  Report Type: Other
  Country: US (occurrence: US)
  Receive Date: 20221128
  Receipt Date: 20221128
  Transmission Date: 20230113
  Serious: Yes (Other)
  Sender: FDA-Public Use
  Company Number: c

PATIENT
  Age: 6 Year
  Sex: Male

DRUGS (1)
  1. CATHFLO ACTIVASE [Suspect]
     Active Substance: ALTEPLASE
     Indication: Product used for unknown indication
     Dosage: INTRACATHETER TPA (SPECIFICALLY CATH-FLO ACTIVASE) WAS ADMINISTERED AT TIME 0 H WITH PAA DRAWN FROM
     Route: 042

REACTIONS (3)
  - Rhabdomyolysis [Unknown]
  - Arginase deficiency [Recovered/Resolved]
  - Exercise tolerance decreased [Unknown]
